FAERS Safety Report 10020607 (Version 1)
Quarter: 2014Q1

REPORT INFORMATION
  Report Type: Report from Study
  Country: HR (occurrence: HR)
  Receive Date: 20140319
  Receipt Date: 20140319
  Transmission Date: 20141002
  Serious: Yes (Hospitalization)
  Sender: FDA-Public Use
  Company Number: PHHO2014HR003658

PATIENT
  Sex: 0

DRUGS (11)
  1. BLINDED ACZ885 [Suspect]
     Indication: CARDIOVASCULAR EVENT PROPHYLAXIS
     Dosage: CODE NOT BROKEN
     Route: 058
     Dates: start: 20131211
  2. BLINDED NO TREATMENT RECEIVED [Suspect]
     Indication: CARDIOVASCULAR EVENT PROPHYLAXIS
     Dosage: CODE NOT BROKEN
     Route: 058
     Dates: start: 20131211
  3. BLINDED PLACEBO [Suspect]
     Indication: CARDIOVASCULAR EVENT PROPHYLAXIS
     Dosage: CODE NOT BROKEN
     Route: 058
     Dates: start: 20131211
  4. ACETYLSALICYLIC ACID [Suspect]
     Indication: MYOCARDIAL INFARCTION
     Dosage: 100 MG, BID
     Route: 048
     Dates: start: 20060101
  5. CLOPIDOGREL [Suspect]
     Indication: CORONARY ARTERY DISEASE
     Dosage: 75 MG, QD
     Route: 048
     Dates: start: 20110701
  6. METOPROLOL [Concomitant]
     Indication: ANGINA PECTORIS
     Dosage: 25 MG, BID
     Route: 048
     Dates: start: 20111113
  7. FUROSEMIDE [Concomitant]
     Indication: CARDIAC FAILURE
     Dosage: 125 MG, BID
     Route: 048
     Dates: start: 20111113
  8. IVABRADINE [Concomitant]
     Indication: SINUS TACHYCARDIA
     Dosage: 7.5 MG, BID
     Route: 048
     Dates: start: 20140205
  9. TRIMETAZIDINE [Concomitant]
     Indication: CORONARY ARTERY DISEASE
     Dosage: 35 MG, BID
     Route: 048
     Dates: start: 20110301
  10. CANDESARTAN [Concomitant]
     Indication: HYPERTENSION
     Dosage: 8 MG, QD
     Route: 048
     Dates: start: 20121120
  11. RANOLAZINE [Concomitant]
     Indication: ANGINA PECTORIS
     Dosage: 750 MG, BID
     Route: 048
     Dates: start: 20140217

REACTIONS (1)
  - Gastritis [Recovered/Resolved]
